FAERS Safety Report 5930181-X (Version None)
Quarter: 2008Q4

REPORT INFORMATION
  Report Type: 
  Country: None (occurrence: None)
  Receive Date: 20081024
  Receipt Date: 20081013
  Transmission Date: 20090506
  Serious: Yes (Other)
  Sender: FDA-Public Use
  Company Number: US-PFIZER INC-2008086989

PATIENT
  Sex: Female
  Weight: 62.1 kg

DRUGS (2)
  1. CHANTIX [Suspect]
     Indication: SMOKING CESSATION THERAPY
     Dates: start: 20080101
  2. ANTIDEPRESSANTS [Concomitant]

REACTIONS (3)
  - HAEMOPTYSIS [None]
  - HOSTILITY [None]
  - IRRITABILITY [None]
